FAERS Safety Report 8810947 (Version 1)
Quarter: 2012Q4

REPORT INFORMATION
  Report Type: Spontaneous
  Country: DE (occurrence: None)
  Receive Date: 20120921
  Receipt Date: 20120921
  Transmission Date: 20130627
  Serious: Yes (Hospitalization, Other)
  Sender: FDA-Public Use
  Company Number: 2012P1057042

PATIENT
  Age: 71 Year
  Sex: Female

DRUGS (3)
  1. CITALOPRAM [Suspect]
     Indication: DEPRESSION
  2. CITALOPRAM [Suspect]
     Indication: DEPRESSION
  3. BUDESONIDE/FORMOTEROL [Concomitant]

REACTIONS (2)
  - Cutaneous lupus erythematosus [None]
  - Photosensitivity reaction [None]
